FAERS Safety Report 9497759 (Version 1)
Quarter: 2013Q3

REPORT INFORMATION
  Report Type: Spontaneous
  Country: US (occurrence: None)
  Receive Date: 20130903
  Receipt Date: 20130903
  Transmission Date: 20140515
  Serious: No
  Sender: FDA-Public Use
  Company Number: None

PATIENT
  Age: 6 Month
  Sex: 0

DRUGS (2)
  1. FINASTERIDE [Suspect]
     Indication: ALOPECIA
     Route: 048
     Dates: start: 20130301, end: 20130828
  2. FINASTERIDE [Suspect]
     Indication: PROPHYLAXIS
     Route: 048
     Dates: start: 20130301, end: 20130828

REACTIONS (2)
  - Libido decreased [None]
  - Penile curvature [None]
